FAERS Safety Report 9335330 (Version 1)
Quarter: 2013Q2

REPORT INFORMATION
  Report Type: Spontaneous
  Country: US (occurrence: US)
  Receive Date: 20130606
  Receipt Date: 20130606
  Transmission Date: 20140414
  Serious: Yes (Other)
  Sender: FDA-Public Use
  Company Number: US-JNJFOC-20130522289

PATIENT
  Age: 76 Year
  Sex: Male
  Weight: 65.77 kg

DRUGS (2)
  1. TOPAMAX [Suspect]
     Indication: CONVULSION
     Route: 048
     Dates: start: 2004, end: 2012
  2. TOPAMAX [Suspect]
     Indication: CONVULSION
     Route: 048
     Dates: start: 2012

REACTIONS (3)
  - Convulsion [Recovered/Resolved]
  - Body height decreased [Unknown]
  - Drug dose omission [Unknown]
